FAERS Safety Report 6570208-8 (Version None)
Quarter: 2010Q1

REPORT INFORMATION
  Report Type: 
  Country: None (occurrence: None)
  Receive Date: 20100202
  Receipt Date: 20100202
  Transmission Date: 20100710
  Serious: Yes (Hospitalization, Other)
  Sender: FDA-Public Use
  Company Number: None

PATIENT
  Age: 19 Year
  Sex: Female
  Weight: 79.3795 kg

DRUGS (1)
  1. DEPO-PROVERA [Suspect]
     Indication: CONTRACEPTION
     Dates: start: 20060101, end: 20070601

REACTIONS (12)
  - FATIGUE [None]
  - GASTROENTERITIS [None]
  - HEADACHE [None]
  - LIBIDO DECREASED [None]
  - NAUSEA [None]
  - PANIC ATTACK [None]
  - POLYCYSTIC OVARIES [None]
  - PYREXIA [None]
  - URINARY TRACT INFECTION [None]
  - URTICARIA [None]
  - VOMITING [None]
  - WEIGHT INCREASED [None]
